FAERS Safety Report 24180512 (Version 15)
Quarter: 2025Q3

REPORT INFORMATION
  Report Type: Spontaneous
  Country: CA (occurrence: CA)
  Receive Date: 20240806
  Receipt Date: 20250926
  Transmission Date: 20251020
  Serious: Yes (Death, Life-Threatening, Hospitalization, Disabling, Congenital Anomaly, Other)
  Sender: GLAXOSMITHKLINE
  Company Number: CA-GLAXOSMITHKLINE-CA2024AMR096834

PATIENT
  Age: 40 Year
  Sex: Female
  Weight: 96 kg

DRUGS (104)
  1. LAMICTAL [Suspect]
     Active Substance: LAMOTRIGINE
     Indication: Product used for unknown indication
  2. LAMICTAL [Suspect]
     Active Substance: LAMOTRIGINE
  3. LAMICTAL [Suspect]
     Active Substance: LAMOTRIGINE
     Dosage: 25 MG, QOD
  4. LAMICTAL [Suspect]
     Active Substance: LAMOTRIGINE
     Dosage: 50 MG, QOD
  5. NUCALA [Suspect]
     Active Substance: MEPOLIZUMAB
     Indication: Product used for unknown indication
  6. COSENTYX [Suspect]
     Active Substance: SECUKINUMAB
     Indication: Psoriatic arthropathy
     Route: 065
  7. COSENTYX [Suspect]
     Active Substance: SECUKINUMAB
     Route: 065
  8. COSENTYX [Suspect]
     Active Substance: SECUKINUMAB
     Dosage: 20 MG, QD
     Route: 065
  9. COSENTYX [Suspect]
     Active Substance: SECUKINUMAB
     Route: 065
  10. COSENTYX [Suspect]
     Active Substance: SECUKINUMAB
  11. COSENTYX [Suspect]
     Active Substance: SECUKINUMAB
  12. AIMOVIG [Suspect]
     Active Substance: ERENUMAB-AOOE
     Indication: Migraine
     Route: 065
  13. DICLOFENAC SODIUM [Suspect]
     Active Substance: DICLOFENAC SODIUM
     Indication: Product used for unknown indication
  14. TRIAMCINOLONE ACETONIDE [Suspect]
     Active Substance: TRIAMCINOLONE ACETONIDE
     Indication: Rheumatoid arthritis
  15. ACETAMINOPHEN AND CODEINE [Suspect]
     Active Substance: ACETAMINOPHEN\CODEINE PHOSPHATE
     Indication: Product used for unknown indication
     Route: 065
  16. ACTEMRA [Suspect]
     Active Substance: TOCILIZUMAB
     Indication: Rheumatoid arthritis
  17. ACTEMRA [Suspect]
     Active Substance: TOCILIZUMAB
     Indication: Abdominal discomfort
  18. ACTEMRA [Suspect]
     Active Substance: TOCILIZUMAB
  19. ACTEMRA [Suspect]
     Active Substance: TOCILIZUMAB
  20. ACTEMRA [Suspect]
     Active Substance: TOCILIZUMAB
  21. ACTEMRA [Suspect]
     Active Substance: TOCILIZUMAB
  22. ACTEMRA [Suspect]
     Active Substance: TOCILIZUMAB
     Route: 065
  23. ACTEMRA [Suspect]
     Active Substance: TOCILIZUMAB
     Dosage: 25 MG, WE
     Route: 065
  24. ACTEMRA [Suspect]
     Active Substance: TOCILIZUMAB
     Dosage: 25 MG, WE
  25. ACTEMRA [Suspect]
     Active Substance: TOCILIZUMAB
  26. ACTEMRA [Suspect]
     Active Substance: TOCILIZUMAB
  27. ACTEMRA [Suspect]
     Active Substance: TOCILIZUMAB
     Route: 065
  28. ACTEMRA [Suspect]
     Active Substance: TOCILIZUMAB
  29. ACTEMRA [Suspect]
     Active Substance: TOCILIZUMAB
  30. ACTEMRA [Suspect]
     Active Substance: TOCILIZUMAB
  31. ACTEMRA [Suspect]
     Active Substance: TOCILIZUMAB
  32. ACTEMRA [Suspect]
     Active Substance: TOCILIZUMAB
  33. ACTEMRA [Suspect]
     Active Substance: TOCILIZUMAB
  34. ACTEMRA [Suspect]
     Active Substance: TOCILIZUMAB
  35. ACTEMRA [Suspect]
     Active Substance: TOCILIZUMAB
  36. ACTEMRA [Suspect]
     Active Substance: TOCILIZUMAB
  37. ACTEMRA [Suspect]
     Active Substance: TOCILIZUMAB
  38. ACTEMRA [Suspect]
     Active Substance: TOCILIZUMAB
  39. ACTEMRA [Suspect]
     Active Substance: TOCILIZUMAB
     Route: 065
  40. ACTEMRA [Suspect]
     Active Substance: TOCILIZUMAB
  41. ACTEMRA [Suspect]
     Active Substance: TOCILIZUMAB
  42. ACTEMRA [Suspect]
     Active Substance: TOCILIZUMAB
  43. ACTEMRA [Suspect]
     Active Substance: TOCILIZUMAB
     Route: 065
  44. ADALIMUMAB [Suspect]
     Active Substance: ADALIMUMAB
     Indication: Rheumatoid arthritis
  45. ADALIMUMAB [Suspect]
     Active Substance: ADALIMUMAB
     Dosage: 40 MG, WE
     Route: 065
  46. ADALIMUMAB [Suspect]
     Active Substance: ADALIMUMAB
     Dosage: 40 MG, Q2W
  47. ADALIMUMAB [Suspect]
     Active Substance: ADALIMUMAB
  48. ALENDRONATE SODIUM\CHOLECALCIFEROL [Suspect]
     Active Substance: ALENDRONATE SODIUM\CHOLECALCIFEROL
     Indication: Rheumatoid arthritis
  49. ALENDRONIC ACID [Suspect]
     Active Substance: ALENDRONIC ACID
     Indication: Rheumatoid arthritis
  50. ALENDRONIC ACID [Suspect]
     Active Substance: ALENDRONIC ACID
  51. ARAVA [Suspect]
     Active Substance: LEFLUNOMIDE
     Indication: Rheumatoid arthritis
  52. ARAVA [Suspect]
     Active Substance: LEFLUNOMIDE
     Dosage: 20 MG, QD
  53. ARAVA [Suspect]
     Active Substance: LEFLUNOMIDE
     Route: 065
  54. ARAVA [Suspect]
     Active Substance: LEFLUNOMIDE
  55. ATOMOXETINE [Suspect]
     Active Substance: ATOMOXETINE
     Indication: Migraine
     Route: 065
  56. AZATHIOPRINE [Suspect]
     Active Substance: AZATHIOPRINE
     Indication: Rheumatoid arthritis
     Route: 065
  57. BERINERT [Suspect]
     Active Substance: HUMAN C1-ESTERASE INHIBITOR
     Indication: Product used for unknown indication
  58. BOTULINUM TOXIN TYPE A [Suspect]
     Active Substance: BOTULINUM TOXIN TYPE A
     Indication: Product used for unknown indication
  59. BUTRANS [Suspect]
     Active Substance: BUPRENORPHINE
     Indication: Product used for unknown indication
     Route: 065
  60. CALCIUM ASCORBATE [Suspect]
     Active Substance: CALCIUM ASCORBATE
     Indication: Product used for unknown indication
     Route: 065
  61. CALCIUM CARBONATE [Suspect]
     Active Substance: CALCIUM CARBONATE
     Indication: Product used for unknown indication
  62. CALCIUM CITRATE [Suspect]
     Active Substance: CALCIUM CITRATE
     Indication: Product used for unknown indication
     Route: 065
  63. CALCIUM GLUBIONATE [Suspect]
     Active Substance: CALCIUM GLUBIONATE
     Indication: Product used for unknown indication
  64. CELEBREX [Suspect]
     Active Substance: CELECOXIB
     Indication: Product used for unknown indication
     Dosage: UNK, QD
  65. CELEBREX [Suspect]
     Active Substance: CELECOXIB
     Dosage: UNK, QD
     Route: 065
  66. CELEBREX [Suspect]
     Active Substance: CELECOXIB
     Dosage: 1 DF, QD
  67. CELEBREX [Suspect]
     Active Substance: CELECOXIB
     Dosage: 2 DF, QD
  68. CELEBREX [Suspect]
     Active Substance: CELECOXIB
  69. CELEBREX [Suspect]
     Active Substance: CELECOXIB
  70. CETIRIZINE [Suspect]
     Active Substance: CETIRIZINE HYDROCHLORIDE
     Indication: Rheumatoid arthritis
  71. CETIRIZINE [Suspect]
     Active Substance: CETIRIZINE HYDROCHLORIDE
  72. CETIRIZINE [Suspect]
     Active Substance: CETIRIZINE HYDROCHLORIDE
  73. CETIRIZINE [Suspect]
     Active Substance: CETIRIZINE HYDROCHLORIDE
  74. CETIRIZINE [Suspect]
     Active Substance: CETIRIZINE HYDROCHLORIDE
     Route: 065
  75. CETIRIZINE [Suspect]
     Active Substance: CETIRIZINE HYDROCHLORIDE
  76. CHLORHEXIDINE GLUCONATE [Suspect]
     Active Substance: CHLORHEXIDINE GLUCONATE
     Indication: Product used for unknown indication
  77. CIMZIA [Suspect]
     Active Substance: CERTOLIZUMAB PEGOL
     Indication: Rheumatoid arthritis
  78. CIMZIA [Suspect]
     Active Substance: CERTOLIZUMAB PEGOL
     Indication: Psoriasis
  79. CIMZIA [Suspect]
     Active Substance: CERTOLIZUMAB PEGOL
  80. CIMZIA [Suspect]
     Active Substance: CERTOLIZUMAB PEGOL
  81. DESOXIMETASONE [Suspect]
     Active Substance: DESOXIMETASONE
     Indication: Rheumatoid arthritis
  82. DESOXIMETASONE [Suspect]
     Active Substance: DESOXIMETASONE
  83. DESOXIMETASONE [Suspect]
     Active Substance: DESOXIMETASONE
  84. ENBREL [Suspect]
     Active Substance: ETANERCEPT
     Indication: Rheumatoid arthritis
     Route: 065
  85. ENBREL [Suspect]
     Active Substance: ETANERCEPT
     Dosage: 50 MG, QD
  86. ENBREL [Suspect]
     Active Substance: ETANERCEPT
     Route: 065
  87. ENBREL [Suspect]
     Active Substance: ETANERCEPT
     Dosage: 40 MG, QD
  88. ENBREL [Suspect]
     Active Substance: ETANERCEPT
  89. LEFLUNOMIDE [Suspect]
     Active Substance: LEFLUNOMIDE
     Indication: Rheumatoid arthritis
     Dosage: 20 MG, QD
     Route: 065
  90. LEFLUNOMIDE [Suspect]
     Active Substance: LEFLUNOMIDE
  91. LEFLUNOMIDE [Suspect]
     Active Substance: LEFLUNOMIDE
     Dosage: 10 MG
  92. LEFLUNOMIDE [Suspect]
     Active Substance: LEFLUNOMIDE
  93. LEFLUNOMIDE [Suspect]
     Active Substance: LEFLUNOMIDE
  94. LEFLUNOMIDE [Suspect]
     Active Substance: LEFLUNOMIDE
  95. LEFLUNOMIDE [Suspect]
     Active Substance: LEFLUNOMIDE
     Route: 065
  96. LEFLUNOMIDE [Suspect]
     Active Substance: LEFLUNOMIDE
     Dosage: 10 MG, QD
     Route: 065
  97. LEFLUNOMIDE [Suspect]
     Active Substance: LEFLUNOMIDE
     Route: 065
  98. GOLIMUMAB [Suspect]
     Active Substance: GOLIMUMAB
     Indication: Rheumatoid arthritis
  99. GOLIMUMAB [Suspect]
     Active Substance: GOLIMUMAB
     Indication: Prostatic specific antigen
  100. GOLIMUMAB [Suspect]
     Active Substance: GOLIMUMAB
  101. LEFLUNOMIDE [Suspect]
     Active Substance: LEFLUNOMIDE
     Indication: Rheumatoid arthritis
     Route: 065
  102. LEFLUNOMIDE [Suspect]
     Active Substance: LEFLUNOMIDE
     Route: 065
  103. LEFLUNOMIDE [Suspect]
     Active Substance: LEFLUNOMIDE
     Dosage: 10 MG, QD
     Route: 065
  104. LEFLUNOMIDE [Suspect]
     Active Substance: LEFLUNOMIDE

REACTIONS (83)
  - Adverse reaction [Fatal]
  - Pneumonia [Fatal]
  - Systemic lupus erythematosus [Fatal]
  - Rheumatoid arthritis [Fatal]
  - Type 2 diabetes mellitus [Fatal]
  - Onychomycosis [Fatal]
  - Obesity [Fatal]
  - Stomatitis [Fatal]
  - Contraindicated product administered [Fatal]
  - Off label use [Fatal]
  - Breast cancer stage III [Fatal]
  - Coeliac disease [Fatal]
  - Duodenal ulcer perforation [Fatal]
  - Epilepsy [Fatal]
  - Hepatitis [Fatal]
  - Liver injury [Fatal]
  - Lower respiratory tract infection [Fatal]
  - Pemphigus [Fatal]
  - Pericarditis [Fatal]
  - Psoriatic arthropathy [Fatal]
  - Rheumatic fever [Fatal]
  - Abdominal distension [Fatal]
  - Abdominal pain upper [Fatal]
  - Alopecia [Fatal]
  - Arthralgia [Fatal]
  - Arthropathy [Fatal]
  - Asthenia [Fatal]
  - Back injury [Fatal]
  - Blepharospasm [Fatal]
  - Blister [Fatal]
  - Bursitis [Fatal]
  - Confusional state [Fatal]
  - Depression [Fatal]
  - Diarrhoea [Fatal]
  - Drug hypersensitivity [Fatal]
  - Drug-induced liver injury [Fatal]
  - Dyspnoea [Fatal]
  - Facet joint syndrome [Fatal]
  - Fatigue [Fatal]
  - Fibromyalgia [Fatal]
  - Finger deformity [Fatal]
  - Folliculitis [Fatal]
  - Gastrooesophageal reflux disease [Fatal]
  - Glossodynia [Fatal]
  - Hand deformity [Fatal]
  - Helicobacter infection [Fatal]
  - Hypercholesterolaemia [Fatal]
  - Hypersensitivity [Fatal]
  - Hypertension [Fatal]
  - Hypoaesthesia [Fatal]
  - Impaired healing [Fatal]
  - Infusion related reaction [Fatal]
  - Injection site reaction [Fatal]
  - Insomnia [Fatal]
  - Irritable bowel syndrome [Fatal]
  - Joint range of motion decreased [Fatal]
  - Joint swelling [Fatal]
  - Lip dry [Fatal]
  - Memory impairment [Fatal]
  - Migraine [Fatal]
  - Muscle injury [Fatal]
  - Muscle spasms [Fatal]
  - Muscular weakness [Fatal]
  - Musculoskeletal pain [Fatal]
  - Musculoskeletal stiffness [Fatal]
  - Nail disorder [Fatal]
  - Nasopharyngitis [Fatal]
  - Nausea [Fatal]
  - Neck pain [Fatal]
  - Night sweats [Fatal]
  - Onychomadesis [Fatal]
  - Osteoarthritis [Fatal]
  - Pain in extremity [Fatal]
  - Paraesthesia [Fatal]
  - Peripheral swelling [Fatal]
  - Peripheral venous disease [Fatal]
  - Synovitis [Fatal]
  - Wound infection [Fatal]
  - Therapeutic product effect incomplete [Fatal]
  - Exposure during pregnancy [Fatal]
  - Dry mouth [Fatal]
  - Dizziness [Fatal]
  - Vomiting [Fatal]
